FAERS Safety Report 8926933 (Version 2)
Quarter: 2012Q4

REPORT INFORMATION
  Report Type: 
  Country: IT (occurrence: IT)
  Receive Date: 20121127
  Receipt Date: 20121225
  Transmission Date: 20130627
  Serious: Yes (Hospitalization)
  Sender: FDA-Public Use
  Company Number: IT-SANOFI-AVENTIS-2012SA085169

PATIENT
  Age: 82 Year
  Sex: Male

DRUGS (9)
  1. LASIX [Suspect]
     Indication: DRUG USE FOR UNKNOWN INDICATION
     Route: 048
     Dates: start: 20110802, end: 20120801
  2. ALDACTONE [Suspect]
     Indication: DRUG USE FOR UNKNOWN INDICATION
     Dosage: form: rigid capsules
     Route: 048
     Dates: start: 20110802, end: 20120801
  3. VALSARTAN [Suspect]
     Indication: DRUG USE FOR UNKNOWN INDICATION
     Route: 048
     Dates: start: 20110802, end: 20120801
  4. MICARDIS [Suspect]
     Indication: DRUG USE FOR UNKNOWN INDICATION
     Dosage: strength: 80 mg
     Route: 048
     Dates: start: 20110802, end: 20120801
  5. METFORMIN HYDROCHLORIDE [Concomitant]
     Route: 048
  6. PAROXETINE [Concomitant]
  7. TIOTROPIUM BROMIDE [Concomitant]
     Dosage: strength: 2.5 mcg
  8. ESOMEPRAZOLE MAGNESIUM [Concomitant]
     Route: 048
  9. FORMOTEROL [Concomitant]
     Dosage: strength: 12 mcg

REACTIONS (4)
  - Asthenia [Not Recovered/Not Resolved]
  - Dehydration [Not Recovered/Not Resolved]
  - Hyponatraemia [Not Recovered/Not Resolved]
  - Hyperkalaemia [Not Recovered/Not Resolved]
